FAERS Safety Report 8591133-7 (Version None)
Quarter: 2012Q3

REPORT INFORMATION
  Report Type: 
  Country: None (occurrence: None)
  Receive Date: 20120813
  Receipt Date: 20120809
  Transmission Date: 20120928
  Serious: Yes (Hospitalization, Other)
  Sender: FDA-Public Use
  Company Number: US-ROCHE-718943

PATIENT
  Sex: Male
  Weight: 63.5 kg

DRUGS (2)
  1. ACCUTANE [Suspect]
     Indication: ACNE CYSTIC
     Route: 065
     Dates: start: 19930901, end: 19940203
  2. ACCUTANE [Suspect]
     Route: 065
     Dates: start: 19950516, end: 19950101

REACTIONS (10)
  - INTESTINAL OBSTRUCTION [None]
  - GASTROINTESTINAL INJURY [None]
  - DEPRESSION [None]
  - CHOLANGITIS SCLEROSING [None]
  - NEPHROLITHIASIS [None]
  - INFLAMMATORY BOWEL DISEASE [None]
  - ORAL HERPES [None]
  - BLOOD LACTATE DEHYDROGENASE INCREASED [None]
  - COLITIS ULCERATIVE [None]
  - BLOOD TRIGLYCERIDES INCREASED [None]
